FAERS Safety Report 24566196 (Version 1)
Quarter: 2024Q4

REPORT INFORMATION
  Report Type: Spontaneous
  Country: US (occurrence: None)
  Receive Date: 20241029
  Receipt Date: 20241029
  Transmission Date: 20250115
  Serious: Yes (Hospitalization)
  Sender: Public
  Company Number: None

PATIENT
  Age: 49 Year
  Sex: Male

DRUGS (2)
  1. IOHEXOL [Suspect]
     Active Substance: IOHEXOL
     Indication: Angiogram
     Dosage: OTHER FREQUENCY : ONCE;?
     Route: 042
     Dates: start: 20240610, end: 20240610
  2. VANCOMYCIN [Suspect]
     Active Substance: VANCOMYCIN

REACTIONS (3)
  - Acute kidney injury [None]
  - Contrast media reaction [None]
  - Drug level increased [None]

NARRATIVE: CASE EVENT DATE: 20240603
